FAERS Safety Report 6135138-4 (Version None)
Quarter: 2009Q1

REPORT INFORMATION
  Report Type: 
  Country: None (occurrence: None)
  Receive Date: 20090327
  Receipt Date: 20090320
  Transmission Date: 20090719
  Serious: Yes (Other)
  Sender: FDA-Public Use
  Company Number: US-MERCK-0903USA04205

PATIENT
  Age: 56 Year
  Sex: Female

DRUGS (6)
  1. FOSAMAX [Suspect]
     Indication: OSTEOPENIA
     Route: 048
     Dates: start: 20010901, end: 20050401
  2. ACTONEL [Suspect]
     Indication: OSTEOPENIA
     Route: 048
     Dates: start: 20010701, end: 20010801
  3. LAMICTAL [Concomitant]
     Route: 065
  4. PATANOL [Concomitant]
     Route: 065
  5. NEXIUM [Concomitant]
     Route: 065
  6. VITAMINS (UNSPECIFIED) [Concomitant]
     Route: 065

REACTIONS (3)
  - BONE DISORDER [None]
  - GINGIVAL EROSION [None]
  - SOFT TISSUE ATROPHY [None]
